FAERS Safety Report 16032003 (Version 2)
Quarter: 2019Q1

REPORT INFORMATION
  Report Type: Spontaneous
  Country: JP (occurrence: JP)
  Receive Date: 20190304
  Receipt Date: 20190304
  Transmission Date: 20190418
  Serious: Yes (Death, Hospitalization)
  Sender: FDA-Public Use
  Company Number: PHHY2019JP047758

PATIENT
  Age: 87 Year
  Sex: Male
  Weight: 49.3 kg

DRUGS (2)
  1. CILOSTAZOL. [Concomitant]
     Active Substance: CILOSTAZOL
     Indication: PRODUCT USED FOR UNKNOWN INDICATION
     Route: 065
  2. PREDNISOLONE. [Suspect]
     Active Substance: PREDNISOLONE
     Indication: PRODUCT USED FOR UNKNOWN INDICATION
     Dosage: 0.5 MG/KG, QD
     Route: 065

REACTIONS (7)
  - Stenosis [Unknown]
  - Pneumonia aspiration [Fatal]
  - Skin ulcer [Unknown]
  - Pain [Unknown]
  - Asthenia [Fatal]
  - Arterial thrombosis [Unknown]
  - Ankle brachial index increased [Unknown]
